FAERS Safety Report 7266768-4 (Version None)
Quarter: 2011Q1

REPORT INFORMATION
  Report Type: 
  Country: None (occurrence: None)
  Receive Date: 20110201
  Receipt Date: 20110119
  Transmission Date: 20110831
  Serious: No
  Sender: FDA-Public Use
  Company Number: US-BIOGENIDEC-2011BI003214

PATIENT
  Age: 62 Year
  Sex: Female

DRUGS (2)
  1. TYSABRI [Suspect]
     Route: 042
     Dates: start: 20050201, end: 20050201
  2. TYSABRI [Suspect]
     Indication: MULTIPLE SCLEROSIS
     Route: 042
     Dates: start: 20070503

REACTIONS (6)
  - MUSCLE SPASMS [None]
  - MEMORY IMPAIRMENT [None]
  - MACULAR DEGENERATION [None]
  - OPTIC NERVE DISORDER [None]
  - HEADACHE [None]
  - MUSCULOSKELETAL STIFFNESS [None]
